FAERS Safety Report 9704294 (Version 3)
Quarter: 2014Q1

REPORT INFORMATION
  Report Type: Report from Study
  Country: US (occurrence: US)
  Receive Date: 20131122
  Receipt Date: 20140329
  Transmission Date: 20141002
  Serious: Yes (Death, Hospitalization, Other)
  Sender: FDA-Public Use
  Company Number: US-ROCHE-1304052

PATIENT
  Age: 57 Year
  Sex: Female

DRUGS (5)
  1. CAPECITABINE [Suspect]
     Indication: PRODUCT USED FOR UNKNOWN INDICATION
     Dosage: 14 DAYS ON, 7 DAYS OFF
     Route: 048
     Dates: start: 20131014
  2. BEVACIZUMAB [Suspect]
     Indication: PRODUCT USED FOR UNKNOWN INDICATION
     Route: 042
  3. OXALIPLATIN [Suspect]
     Indication: PRODUCT USED FOR UNKNOWN INDICATION
     Route: 065
  4. WELLBUTRIN [Concomitant]
  5. SIMVASTATIN [Concomitant]

REACTIONS (8)
  - Death [Fatal]
  - Malaise [Recovered/Resolved]
  - Pharyngeal oedema [Recovered/Resolved]
  - Swollen tongue [Recovered/Resolved]
  - Pain in extremity [Recovered/Resolved]
  - Temperature intolerance [Unknown]
  - Nausea [Unknown]
  - Muscle spasms [Recovered/Resolved]
